FAERS Safety Report 8096618-8 (Version None)
Quarter: 2012Q1

REPORT INFORMATION
  Report Type: 
  Country: None (occurrence: None)
  Receive Date: 20120129
  Receipt Date: 20111201
  Transmission Date: 20120608
  Serious: No
  Sender: FDA-Public Use
  Company Number: US-ABBOTT-11P-163-0880034-00

PATIENT
  Sex: Female
  Weight: 81.72 kg

DRUGS (5)
  1. UNKNOWN MUSCLE RELAXANTS [Concomitant]
     Indication: SLEEP DISORDER THERAPY
  2. UNKNOWN MEDICATION [Concomitant]
     Indication: RHEUMATOID ARTHRITIS
     Dates: start: 20111101
  3. HUMIRA [Suspect]
     Dates: start: 20110101, end: 20111101
  4. HUMIRA [Suspect]
     Indication: RHEUMATOID ARTHRITIS
     Dates: start: 20110101, end: 20110101
  5. UNKNOWN MEDICATION [Concomitant]
     Indication: HYPERTENSION

REACTIONS (3)
  - DRUG INEFFECTIVE [None]
  - ARTHROPATHY [None]
  - ARTHRALGIA [None]
